FAERS Safety Report 18141527 (Version 1)
Quarter: 2020Q3

REPORT INFORMATION
  Report Type: Report from Study
  Country: US (occurrence: US)
  Receive Date: 20200812
  Receipt Date: 20200812
  Transmission Date: 20201103
  Serious: Yes (Hospitalization, Other)
  Sender: FDA-Public Use
  Company Number: US-BRISTOL-MYERS SQUIBB COMPANY-BMS-2020-063375

PATIENT
  Sex: Male
  Weight: 72.56 kg

DRUGS (2)
  1. BAYER ASPIRIN [Suspect]
     Active Substance: ASPIRIN
     Indication: PRODUCT USED FOR UNKNOWN INDICATION
     Dosage: UNK
     Route: 065
  2. APIXABAN [Suspect]
     Active Substance: APIXABAN
     Indication: MYOCARDIAL INFARCTION
     Dosage: UNK UNK, QD
     Route: 048

REACTIONS (8)
  - Cognitive disorder [Unknown]
  - Intentional product use issue [Unknown]
  - Renal neoplasm [Unknown]
  - Post procedural haematuria [Unknown]
  - Ureteric cancer [Unknown]
  - Benign neoplasm of bladder [Unknown]
  - Urethral haemorrhage [Unknown]
  - Urinary tract obstruction [Unknown]
